FAERS Safety Report 24677714 (Version 2)
Quarter: 2025Q3

REPORT INFORMATION
  Report Type: Spontaneous
  Country: US (occurrence: US)
  Receive Date: 20241129
  Receipt Date: 20250810
  Transmission Date: 20251020
  Serious: No
  Sender: ALEXION PHARMACEUTICALS
  Company Number: US-AstraZeneca-CH-00711511AP

PATIENT
  Age: 73 Year
  Sex: Female

DRUGS (3)
  1. BYDUREON BCISE [Suspect]
     Active Substance: EXENATIDE
     Dosage: 2 MILLIGRAM, QW
     Route: 065
  2. BYETTA [Suspect]
     Active Substance: EXENATIDE
     Route: 065
  3. BYDUREON [Suspect]
     Active Substance: EXENATIDE
     Route: 065

REACTIONS (4)
  - Injection site haemorrhage [Unknown]
  - Injection site discharge [Unknown]
  - Product dose omission issue [Unknown]
  - Device use issue [Unknown]

NARRATIVE: CASE EVENT DATE: 20240914
